FAERS Safety Report 4507351-0 (Version None)
Quarter: 2004Q4

REPORT INFORMATION
  Report Type: 
  Country: None (occurrence: None)
  Receive Date: 20041118
  Receipt Date: 20041110
  Transmission Date: 20050328
  Serious: Yes (Congenital Anomaly)
  Sender: FDA-Public Use
  Company Number: S04-USA-02068-02

PATIENT
  Age: 0 Day
  Sex: Male

DRUGS (1)
  1. CELEXA [Suspect]
     Indication: DEPRESSION
     Dosage: 30 MG QD TRANSPLACENTAL
     Route: 064
     Dates: end: 20040101

REACTIONS (10)
  - ARNOLD-CHIARI MALFORMATION [None]
  - CONGENITAL ANOMALY OF INNER EAR [None]
  - CONGENITAL ATRIAL SEPTAL DEFECT [None]
  - CONGENITAL CARDIOVASCULAR ANOMALY [None]
  - CONGENITAL ELEVATION OF SCAPULA [None]
  - CONGENITAL TORTICOLLIS [None]
  - DEAFNESS CONGENITAL [None]
  - DEAFNESS UNILATERAL [None]
  - DRUG EXPOSURE DURING PREGNANCY [None]
  - SPINE MALFORMATION [None]
